FAERS Safety Report 8215264-6 (Version None)
Quarter: 2012Q1

REPORT INFORMATION
  Report Type: 
  Country: None (occurrence: None)
  Receive Date: 20120316
  Receipt Date: 20120308
  Transmission Date: 20120608
  Serious: Yes (Other)
  Sender: FDA-Public Use
  Company Number: PL-VERTEX PHARMACEUTICALS INC.-000000000000000114

PATIENT
  Sex: Female

DRUGS (3)
  1. TELAPREVIR [Suspect]
     Indication: HEPATITIS C
     Dosage: DOSAGE FORM: TABLET
     Route: 048
     Dates: start: 20111007, end: 20111209
  2. PEG-INTERFERON [Concomitant]
     Indication: HEPATITIS C
     Dosage: DOSAGE FORM: UNKNOWN
     Route: 058
     Dates: start: 20111007, end: 20111209
  3. RIBAVIRIN [Concomitant]
     Indication: HEPATITIS C
     Dosage: DOSAGE FORM: UNKNOWN
     Route: 048
     Dates: start: 20111007, end: 20111209

REACTIONS (5)
  - SYNCOPE [None]
  - ANGINA PECTORIS [None]
  - RASH [None]
  - PALPITATIONS [None]
  - ANAEMIA [None]
